FAERS Safety Report 9068540 (Version 1)
Quarter: 2013Q1

REPORT INFORMATION
  Report Type: Spontaneous
  Country: US (occurrence: US)
  Receive Date: 20130206
  Receipt Date: 20130206
  Transmission Date: 20140127
  Serious: Yes (Death, Hospitalization, Other)
  Sender: FDA-Public Use
  Company Number: PHHY2013US010977

PATIENT
  Age: 63 Year
  Sex: Female

DRUGS (5)
  1. VANCOMYCIN [Suspect]
     Route: 042
  2. RIFAMPICIN [Suspect]
     Route: 048
  3. LEVOTHYROXINE [Concomitant]
  4. ATORVASTATIN [Concomitant]
  5. ACETAMINOPHEN W/HYDROCODONE [Concomitant]

REACTIONS (2)
  - Drug reaction with eosinophilia and systemic symptoms [Fatal]
  - Gastrointestinal disorder [Unknown]
